FAERS Safety Report 5414771-9 (Version None)
Quarter: 2007Q3

REPORT INFORMATION
  Report Type: 
  Country: None (occurrence: None)
  Receive Date: 20070713
  Receipt Date: 20070326
  Transmission Date: 20080115
  Serious: Yes (Hospitalization)
  Sender: FDA-Public Use
  Company Number: US-JNJFOC-20070201695

PATIENT
  Age: 27 Year
  Sex: Female
  Weight: 61.2356 kg

DRUGS (3)
  1. ORTHO EVRA [Suspect]
     Indication: CONTRACEPTION
     Dosage: TRANSDERMAL
     Route: 062
     Dates: start: 20030701, end: 20050324
  2. ATENOLOL (ATENOLOL) UNSPECIFIED [Concomitant]
  3. EFFEXOR (VENLAFAXINE HYDROCHLORIDE) UNSPECIFIED [Concomitant]

REACTIONS (1)
  - CEREBRAL INFARCTION [None]
